FAERS Safety Report 7100397-8 (Version None)
Quarter: 2010Q4

REPORT INFORMATION
  Report Type: 
  Country: None (occurrence: None)
  Receive Date: 20101112
  Receipt Date: 20100528
  Transmission Date: 20110411
  Serious: Yes (Life-Threatening, Hospitalization, Other)
  Sender: FDA-Public Use
  Company Number: PHHY2010DE12975

PATIENT
  Age: 65 Year
  Sex: Female

DRUGS (7)
  1. EXFORGE [Suspect]
     Indication: HYPERTENSION
     Dosage: 1.5 TABLET, BID
     Route: 048
     Dates: start: 20000101, end: 20100111
  2. SPIRO COMP. [Suspect]
     Indication: MALIGNANT HYPERTENSIVE HEART DISEASE
     Dosage: 1 TABLET DAILY
     Route: 048
     Dates: start: 20070101
  3. XIPAMIDE [Suspect]
     Indication: OEDEMA PERIPHERAL
     Dosage: 40 MG DAILY
     Route: 048
     Dates: start: 20100104, end: 20100111
  4. KALINOR-BRAUSETABLETTEN [Suspect]
     Indication: HYPOKALAEMIA
     Dosage: 40 MMOL PER DAY
     Route: 048
     Dates: start: 20091201, end: 20100111
  5. SIMVASTATIN [Suspect]
     Indication: METABOLIC SYNDROME
     Dosage: 20 MG PER DAY
     Route: 048
     Dates: start: 20070101
  6. METOPROLOL [Concomitant]
     Indication: HYPERTENSION
     Dosage: 50 MG PER DAY
     Route: 048
     Dates: start: 20090901
  7. ALLOPURINOL [Concomitant]
     Indication: HYPERURICAEMIA
     Dosage: 150 MG PER DAY
     Route: 048
     Dates: start: 20070101

REACTIONS (10)
  - AORTIC VALVE SCLEROSIS [None]
  - DRUG TOXICITY [None]
  - HYPERKALAEMIA [None]
  - INTERVERTEBRAL DISC PROTRUSION [None]
  - NAUSEA [None]
  - NEUROLOGICAL SYMPTOM [None]
  - PALLOR [None]
  - PARESIS [None]
  - RENAL DISORDER [None]
  - RENAL FAILURE ACUTE [None]
